FAERS Safety Report 13426000 (Version 1)
Quarter: 2017Q2

REPORT INFORMATION
  Report Type: Spontaneous
  Country: US (occurrence: US)
  Receive Date: 20170411
  Receipt Date: 20170411
  Transmission Date: 20170830
  Serious: No
  Sender: FDA-Public Use
  Company Number: US-JNJFOC-20170305161

PATIENT
  Age: 75 Year
  Sex: Female
  Weight: 90.72 kg

DRUGS (5)
  1. DURAGESIC [Suspect]
     Active Substance: FENTANYL
     Indication: BACK PAIN
     Route: 062
     Dates: start: 20170309, end: 20170310
  2. DURAGESIC [Suspect]
     Active Substance: FENTANYL
     Indication: BACK PAIN
     Dosage: USED 100 MCG/HR FOR ONE YEAR
     Route: 062
  3. DURAGESIC [Suspect]
     Active Substance: FENTANYL
     Indication: BACK PAIN
     Route: 062
  4. DURAGESIC [Suspect]
     Active Substance: FENTANYL
     Indication: BACK PAIN
     Route: 062
  5. DURAGESIC [Suspect]
     Active Substance: FENTANYL
     Indication: BACK PAIN
     Dosage: 25 MCG/HR + 12.5 MCG/HR
     Route: 062

REACTIONS (10)
  - Burning sensation [Unknown]
  - Drug dose omission [Unknown]
  - Underdose [Unknown]
  - Drug ineffective [Unknown]
  - Product quality issue [Unknown]
  - Incorrect dose administered [Unknown]
  - Expired product administered [Unknown]
  - Medication error [Unknown]
  - Insomnia [Unknown]
  - Wrong technique in product usage process [Unknown]

NARRATIVE: CASE EVENT DATE: 201702
